FAERS Safety Report 18474097 (Version 1)
Quarter: 2020Q4

REPORT INFORMATION
  Report Type: Spontaneous
  Country: US (occurrence: US)
  Receive Date: 20201106
  Receipt Date: 20201106
  Transmission Date: 20210114
  Serious: Yes (Hospitalization)
  Sender: FDA-Public Use
  Company Number: None

PATIENT
  Sex: Female

DRUGS (6)
  1. LEVOTHYROXIN [Concomitant]
     Active Substance: LEVOTHYROXINE
     Dates: start: 20200521
  2. ELIQUIS [Concomitant]
     Active Substance: APIXABAN
     Dates: start: 20200928
  3. FOLIC ACID. [Concomitant]
     Active Substance: FOLIC ACID
     Dates: start: 20201012
  4. CABOMETYX [Suspect]
     Active Substance: CABOZANTINIB S-MALATE
     Indication: RENAL CANCER
     Route: 048
     Dates: start: 20200130
  5. METHOTREXATE. [Concomitant]
     Active Substance: METHOTREXATE
     Dates: start: 20200303
  6. MIRTAZAPINE. [Concomitant]
     Active Substance: MIRTAZAPINE
     Dates: start: 20200608

REACTIONS (1)
  - Appendicectomy [None]
